FAERS Safety Report 17638854 (Version 3)
Quarter: 2021Q2

REPORT INFORMATION
  Report Type: Spontaneous
  Country: US (occurrence: US)
  Receive Date: 20200407
  Receipt Date: 20210623
  Transmission Date: 20210716
  Serious: Yes (Death, Other)
  Sender: FDA-Public Use
  Company Number: US-SA-2020SA084935

PATIENT
  Age: 58 Year
  Sex: Female
  Weight: 112.47 kg

DRUGS (21)
  1. ONGLYZA [Concomitant]
     Active Substance: SAXAGLIPTIN HYDROCHLORIDE
  2. MULTIVITAMINS [VITAMINS NOS] [Concomitant]
     Active Substance: VITAMINS
  3. DIPHENHYDRAMINE. [Concomitant]
     Active Substance: DIPHENHYDRAMINE
  4. VITAMIN D2 [Concomitant]
     Active Substance: ERGOCALCIFEROL
  5. LISINOPRIL. [Concomitant]
     Active Substance: LISINOPRIL
  6. NORCO [Concomitant]
     Active Substance: ACETAMINOPHEN\HYDROCODONE BITARTRATE
  7. EPINEPHRINE. [Concomitant]
     Active Substance: EPINEPHRINE
  8. CLINDAMYCIN. [Concomitant]
     Active Substance: CLINDAMYCIN
  9. ACTOS [Concomitant]
     Active Substance: PIOGLITAZONE HYDROCHLORIDE
  10. ACETAMINOPHEN. [Concomitant]
     Active Substance: ACETAMINOPHEN
  11. NORMAL SALINE [Concomitant]
     Active Substance: SODIUM CHLORIDE
  12. CLINDAMYCIN. [Concomitant]
     Active Substance: CLINDAMYCIN
  13. LORATADINE. [Concomitant]
     Active Substance: LORATADINE
  14. LANTUS [Concomitant]
     Active Substance: INSULIN GLARGINE
  15. VICODIN [Concomitant]
     Active Substance: ACETAMINOPHEN\HYDROCODONE BITARTRATE
  16. LUMIZYME [Suspect]
     Active Substance: ALGLUCOSIDASE ALFA
     Indication: GLYCOGEN STORAGE DISEASE TYPE II
     Dosage: 20.45 MG/KG, QOW (2300MG)
     Route: 041
     Dates: start: 20131014
  17. NORMAL SALINE [Concomitant]
     Active Substance: SODIUM CHLORIDE
  18. BACLOFEN. [Concomitant]
     Active Substance: BACLOFEN
  19. FISH OIL [Concomitant]
     Active Substance: FISH OIL
  20. GUAIFENESIN DM [Concomitant]
     Active Substance: DEXTROMETHORPHAN\DEXTROMETHORPHAN HYDROBROMIDE\GUAIFENESIN
  21. CYCLOBENZAPRINE. [Concomitant]
     Active Substance: CYCLOBENZAPRINE

REACTIONS (2)
  - Death [Fatal]
  - Conjunctivitis [Unknown]

NARRATIVE: CASE EVENT DATE: 20210612
